FAERS Safety Report 5751141-8 (Version None)
Quarter: 2008Q2

REPORT INFORMATION
  Report Type: 
  Country: None (occurrence: None)
  Receive Date: 20080521
  Receipt Date: 20080414
  Transmission Date: 20081010
  Serious: Yes (Hospitalization)
  Sender: FDA-Public Use
  Company Number: 2008009227

PATIENT
  Age: 61 Year
  Sex: Male
  Weight: 73.5 kg

DRUGS (1)
  1. ROGAINE 5 [Suspect]
     Indication: ALOPECIA
     Dosage: RECOMMENDED DOSE ONCE DAILY, TOPICAL
     Route: 061
     Dates: start: 20080228, end: 20080320

REACTIONS (1)
  - CHEST PAIN [None]
